FAERS Safety Report 11617228 (Version 1)
Quarter: 2015Q4

REPORT INFORMATION
  Report Type: Spontaneous
  Country: US (occurrence: US)
  Receive Date: 20151009
  Receipt Date: 20151009
  Transmission Date: 20160304
  Serious: Yes (Other)
  Sender: FDA-Public Use
  Company Number: US-009507513-1510USA001819

PATIENT

DRUGS (1)
  1. ISENTRESS [Suspect]
     Active Substance: RALTEGRAVIR POTASSIUM
     Route: 048

REACTIONS (11)
  - Arthritis [Unknown]
  - Brain tumour operation [Unknown]
  - Decreased appetite [Unknown]
  - Cardiac failure [Unknown]
  - Weight decreased [Unknown]
  - Fatigue [Unknown]
  - Neuropathy peripheral [Unknown]
  - Pain [Unknown]
  - Dyspnoea exertional [Unknown]
  - Seizure [Unknown]
  - Myocardial infarction [Unknown]
